FAERS Safety Report 5933636-7 (Version None)
Quarter: 2008Q4

REPORT INFORMATION
  Report Type: 
  Country: None (occurrence: None)
  Receive Date: 20081027
  Receipt Date: 20081016
  Transmission Date: 20090506
  Serious: Yes (Life-Threatening, Other)
  Sender: FDA-Public Use
  Company Number: US024035

PATIENT
  Age: 42 Year
  Sex: Male
  Weight: 60.7 kg

DRUGS (7)
  1. TRISENOX [Suspect]
     Indication: ACUTE PROMYELOCYTIC LEUKAEMIA
     Dosage: 8.7 MG QD INTRAVENOUS DRIP
     Route: 042
     Dates: start: 20080111, end: 20080119
  2. DEXAMETHASONE SODIUM PHOSPHATE [Suspect]
     Dosage: 20 MG QD INTRAVENOUS DRIP
     Route: 041
     Dates: start: 20080120, end: 20080125
  3. DEXAMETHASONE SODIUM PHOSPHATE [Suspect]
     Dosage: 16 MG QD INTRAVENOUS DRIP
     Route: 041
     Dates: start: 20080126, end: 20080127
  4. DEXAMETHASONE SODIUM PHOSPHATE [Suspect]
     Dosage: 8 MG QD INTRAVENOUS DRIP
     Route: 041
     Dates: start: 20080128, end: 20080131
  5. IDARUBICIN HYDROCHLORIDE [Concomitant]
  6. LANSOPRAZOLE [Concomitant]
  7. ITRACONAZOLE [Concomitant]

REACTIONS (17)
  - ACUTE PROMYELOCYTIC LEUKAEMIA DIFFERENTIATION SYNDROME [None]
  - ALANINE AMINOTRANSFERASE INCREASED [None]
  - ASPARTATE AMINOTRANSFERASE INCREASED [None]
  - BLOOD LACTATE DEHYDROGENASE INCREASED [None]
  - CARDIOMEGALY [None]
  - GAMMA-GLUTAMYLTRANSFERASE INCREASED [None]
  - HYPERGLYCAEMIA [None]
  - HYPERURICAEMIA [None]
  - HYPOALBUMINAEMIA [None]
  - HYPOKALAEMIA [None]
  - HYPONATRAEMIA [None]
  - HYPOPROTEINAEMIA [None]
  - LEUKOCYTOSIS [None]
  - PLEURAL EFFUSION [None]
  - PO2 DECREASED [None]
  - RENAL IMPAIRMENT [None]
  - WEIGHT INCREASED [None]
